FAERS Safety Report 23259033 (Version 1)
Quarter: 2023Q4

REPORT INFORMATION
  Report Type: Spontaneous
  Country: US (occurrence: US)
  Receive Date: 20231204
  Receipt Date: 20231204
  Transmission Date: 20240109
  Serious: No
  Sender: FDA-Public Use
  Company Number: US-HALOZYME THERAPEUTICS, INC.-2022-SPO-TX-0653

PATIENT

DRUGS (1)
  1. XYOSTED [Suspect]
     Active Substance: TESTOSTERONE ENANTHATE
     Indication: Hypogonadism
     Dosage: UNK, QWK
     Route: 058
     Dates: end: 2022

REACTIONS (5)
  - Injection site rash [Not Recovered/Not Resolved]
  - Contusion [Not Recovered/Not Resolved]
  - Pruritus [Unknown]
  - Injection site discolouration [Unknown]
  - Skin exfoliation [Unknown]
